FAERS Safety Report 10230443 (Version 2)
Quarter: 2014Q2

REPORT INFORMATION
  Report Type: Spontaneous
  Country: US (occurrence: US)
  Receive Date: 20140611
  Receipt Date: 20140618
  Transmission Date: 20141212
  Serious: Yes (Hospitalization)
  Sender: FDA-Public Use
  Company Number: US-PERRIGO-14US005751

PATIENT
  Age: 77 Year
  Sex: Female
  Weight: 66.21 kg

DRUGS (14)
  1. NAPROXEN SODIUM 220 MG 490 [Suspect]
     Indication: MUSCULOSKELETAL PAIN
     Dosage: 220 MG, PRN
     Route: 048
     Dates: start: 200501, end: 20140503
  2. NAPROXEN SODIUM 220 MG 490 [Suspect]
     Indication: PAIN
  3. EFFEXOR [Concomitant]
     Indication: DEPRESSION
     Dosage: UNK, UNK
     Route: 065
     Dates: start: 2014
  4. METOPROLOL [Concomitant]
     Indication: CARDIAC DISORDER
     Dosage: UNK, UNK
     Route: 065
     Dates: start: 2014
  5. ALLOPURINOL [Concomitant]
     Indication: GOUT
     Dosage: UNK, UNK
     Route: 065
     Dates: start: 2014
  6. VALIUM [Concomitant]
     Indication: VERTIGO
     Dosage: UNK, UNK
     Route: 065
     Dates: start: 1987
  7. PREMPRO [Concomitant]
     Indication: OESTROGEN REPLACEMENT THERAPY
     Dosage: UNK, UNK
     Route: 065
     Dates: start: 1987
  8. VITAMIN D3 [Concomitant]
     Indication: SUPPLEMENTATION THERAPY
     Dosage: UNK, UNK
     Route: 065
     Dates: start: 1987
  9. FOSAMAX [Concomitant]
     Indication: BONE DENSITY ABNORMAL
     Dosage: UNK, UNK
     Route: 065
     Dates: start: 1987
  10. PRILOSEC                           /00661201/ [Concomitant]
     Indication: GASTRIC ULCER
     Dosage: UNK, UNK
     Route: 065
     Dates: start: 20140514
  11. MICARDIS [Concomitant]
     Indication: CARDIAC DISORDER
     Dosage: UNK, UNK
     Route: 065
     Dates: start: 1987
  12. HYDROCHLOROTHIAZIDE [Concomitant]
     Indication: FLUID RETENTION
     Dosage: UNK, UNK
     Route: 065
     Dates: start: 1987
  13. HYDROCHLOROTHIAZIDE [Concomitant]
     Indication: BLOOD PRESSURE ABNORMAL
  14. ANTIHYPERTENSIVES [Concomitant]
     Indication: HYPERTENSION
     Dosage: UNK, UNK
     Route: 065
     Dates: start: 1987

REACTIONS (7)
  - Gastric ulcer haemorrhage [Unknown]
  - Dizziness [Recovered/Resolved]
  - Faeces discoloured [Recovered/Resolved]
  - Palpitations [Recovered/Resolved]
  - Heart rate increased [Recovered/Resolved]
  - Haemoglobin decreased [Recovering/Resolving]
  - Gastric mucosal lesion [Unknown]
